FAERS Safety Report 18293289 (Version 3)
Quarter: 2020Q4

REPORT INFORMATION
  Report Type: Spontaneous
  Country: JP (occurrence: JP)
  Receive Date: 20200921
  Receipt Date: 20201120
  Transmission Date: 20210113
  Serious: Yes (Disabling, Other)
  Sender: FDA-Public Use
  Company Number: JP-009507513-2008JPN002485J

PATIENT
  Age: 73 Year
  Sex: Female

DRUGS (4)
  1. PNEUMOVAX NP [Suspect]
     Active Substance: PNEUMOCOCCAL VACCINE, POLYVALENT 23
     Indication: PROPHYLAXIS
     Route: 058
     Dates: start: 201412
  2. PNEUMOVAX NP [Suspect]
     Active Substance: PNEUMOCOCCAL VACCINE, POLYVALENT 23
     Dosage: .5 MILLILITER
     Route: 058
     Dates: start: 20200206
  3. LIPOVAS TABLETS 5 [Suspect]
     Active Substance: PRAVASTATIN SODIUM
     Indication: DYSLIPIDAEMIA
     Dosage: 5 MILLIGRAM, QD
     Route: 048
     Dates: start: 20130222, end: 20181120
  4. TSUMURA SHAKUYAKUKANZOTO EXTRACT GRANULES FOR ETHICAL USE [Suspect]
     Active Substance: HERBALS
     Indication: MUSCLE SPASMS
     Dosage: 2.5 GRAM, QD
     Route: 048
     Dates: start: 20161212, end: 20190203

REACTIONS (8)
  - Muscle spasms [Unknown]
  - Myalgia [Unknown]
  - Injection site swelling [Recovered/Resolved with Sequelae]
  - Hypothyroidism [Unknown]
  - Injected limb mobility decreased [Not Recovered/Not Resolved]
  - Injection site erythema [Recovered/Resolved with Sequelae]
  - Injection site pain [Not Recovered/Not Resolved]
  - Myalgia [Recovered/Resolved]

NARRATIVE: CASE EVENT DATE: 201802
